FAERS Safety Report 13019601 (Version 1)
Quarter: 2016Q4

REPORT INFORMATION
  Report Type: Spontaneous
  Country: US (occurrence: US)
  Receive Date: 20161212
  Receipt Date: 20161212
  Transmission Date: 20170207
  Serious: No
  Sender: FDA-Public Use
  Company Number: US-ROCHE-1793369

PATIENT
  Age: 55 Year
  Sex: Male
  Weight: 73.94 kg

DRUGS (8)
  1. NORCO [Concomitant]
     Active Substance: ACETAMINOPHEN\HYDROCODONE BITARTRATE
     Dosage: A FEW YEARS AGO HIS DOCTOR UPPED HIS DOSE FROM 7.5MG TO 10MG AFTER HIS CANCER DIAGNOSIS IN MAR2016.
     Route: 048
     Dates: start: 201606
  2. ASPIRIN. [Concomitant]
     Active Substance: ASPIRIN
     Route: 048
     Dates: start: 2008
  3. LASIX [Concomitant]
     Active Substance: FUROSEMIDE
     Dosage: EVERY MORNING IF NEEDED AND STARTED TWO OR THREE MONTHS AGO
     Route: 048
  4. VALIUM [Suspect]
     Active Substance: DIAZEPAM
     Indication: ILL-DEFINED DISORDER
     Dosage: THE PREVIOUSLY USED DECREASED DOSE WAS 5MG.
     Route: 048
     Dates: start: 201606
  5. PROTONIX [Concomitant]
     Active Substance: PANTOPRAZOLE SODIUM
     Indication: ULCER
     Route: 048
  6. XALKORI [Suspect]
     Active Substance: CRIZOTINIB
     Indication: PULMONARY MASS
     Route: 048
     Dates: start: 201606
  7. SOMA [Concomitant]
     Active Substance: CARISOPRODOL
     Indication: MUSCLE SPASMS
     Dosage: STARTED THREE OR FOUR YEARS AGO.
     Route: 048
  8. PROZAC [Concomitant]
     Active Substance: FLUOXETINE HYDROCHLORIDE
     Indication: DEPRESSION
     Route: 048
     Dates: start: 201603

REACTIONS (6)
  - Pruritus [Not Recovered/Not Resolved]
  - Hypertension [Recovering/Resolving]
  - Heart rate increased [Recovering/Resolving]
  - Cancer pain [Not Recovered/Not Resolved]
  - Pyrexia [Not Recovered/Not Resolved]
  - Chills [Not Recovered/Not Resolved]

NARRATIVE: CASE EVENT DATE: 201606
